FAERS Safety Report 19994296 (Version 2)
Quarter: 2021Q4

REPORT INFORMATION
  Report Type: Spontaneous
  Country: BR (occurrence: BR)
  Receive Date: 20211025
  Receipt Date: 20211208
  Transmission Date: 20220303
  Serious: Yes (Other)
  Sender: FDA-Public Use
  Company Number: BR-NOVARTISPH-NVSC2021BR228631

PATIENT
  Sex: Female
  Weight: 64 kg

DRUGS (5)
  1. LOSARTAN [Suspect]
     Active Substance: LOSARTAN
     Indication: Hypertension
     Dosage: 0.5 DOSAGE FORM, QD (STARTED MANY YEARS AGO)
     Route: 048
  2. ATENOLOL [Suspect]
     Active Substance: ATENOLOL
     Indication: Hypertension
     Dosage: 1 DOSAGE FORM, QD (STARTED MANY YEARS AGO)
     Route: 048
  3. AMLODIPINE [Suspect]
     Active Substance: AMLODIPINE BESYLATE
     Indication: Hypertension
     Dosage: 1 DOSAGE FORM, QD (STARTED 2 YEARS AGO)
     Route: 048
  4. CLOXAZOLAM [Suspect]
     Active Substance: CLOXAZOLAM
     Indication: Stress
     Dosage: 2 MG
     Route: 065
  5. AMITRIPTYLINE [Concomitant]
     Active Substance: AMITRIPTYLINE
     Indication: Depression
     Dosage: 3 DOSAGE FORM, QD (STARTED 20 YEARS AGO)
     Route: 048

REACTIONS (5)
  - Deafness [Not Recovered/Not Resolved]
  - Stress [Unknown]
  - Hypersensitivity [Not Recovered/Not Resolved]
  - Product use issue [Unknown]
  - Wrong technique in product usage process [Unknown]
